FAERS Safety Report 4555449-3 (Version None)
Quarter: 2005Q1

REPORT INFORMATION
  Report Type: 
  Country: None (occurrence: None)
  Receive Date: 20050118
  Receipt Date: 20050118
  Transmission Date: 20050727
  Serious: Yes (Other)
  Sender: FDA-Public Use
  Company Number: None

PATIENT
  Age: 40 Year
  Sex: Female
  Weight: 88.905 kg

DRUGS (2)
  1. EFFEXOR [Suspect]
     Indication: ANXIETY
     Dosage: 1 TABLET   DAILY   ORAL
     Route: 048
     Dates: start: 20040404, end: 20050115
  2. EFFEXOR [Suspect]
     Indication: DEPRESSION
     Dosage: 1 TABLET   DAILY   ORAL
     Route: 048
     Dates: start: 20040404, end: 20050115

REACTIONS (4)
  - MIGRAINE [None]
  - NIGHT SWEATS [None]
  - NIGHTMARE [None]
  - WEIGHT INCREASED [None]
